FAERS Safety Report 19506015 (Version 1)
Quarter: 2021Q3

REPORT INFORMATION
  Report Type: Spontaneous
  Country: US (occurrence: US)
  Receive Date: 20210708
  Receipt Date: 20210708
  Transmission Date: 20211014
  Serious: Yes (Other)
  Sender: FDA-Public Use
  Company Number: US-ASTRAZENECA-2021A596239

PATIENT
  Age: 74 Year
  Sex: Male
  Weight: 127 kg

DRUGS (1)
  1. FARXIGA [Suspect]
     Active Substance: DAPAGLIFLOZIN PROPANEDIOL
     Indication: TYPE 2 DIABETES MELLITUS
     Route: 048
     Dates: end: 20210702

REACTIONS (5)
  - Micturition urgency [Unknown]
  - Urinary tract disorder [Not Recovered/Not Resolved]
  - Dysuria [Unknown]
  - Prostate cancer [Recovering/Resolving]
  - Bladder disorder [Unknown]

NARRATIVE: CASE EVENT DATE: 2019
